FAERS Safety Report 4742059-8 (Version None)
Quarter: 2005Q3

REPORT INFORMATION
  Report Type: 
  Country: None (occurrence: None)
  Receive Date: 20050803
  Receipt Date: 20050721
  Transmission Date: 20060218
  Serious: No
  Sender: FDA-Public Use
  Company Number: THYM-10647

PATIENT
  Sex: Male

DRUGS (3)
  1. THYMOGLOBULIN [Suspect]
     Indication: RENAL TRANSPLANT
  2. RAPA [Concomitant]
  3. STEROIDS [Concomitant]

REACTIONS (3)
  - COMPLICATIONS OF TRANSPLANTED KIDNEY [None]
  - RENAL ARTERY THROMBOSIS [None]
  - SERUM SICKNESS [None]
